FAERS Safety Report 8889516 (Version 1)
Quarter: 2012Q4

REPORT INFORMATION
  Report Type: Spontaneous
  Country: IT (occurrence: None)
  Receive Date: 20121031
  Receipt Date: 20121031
  Transmission Date: 20130627
  Serious: Yes (Hospitalization)
  Sender: FDA-Public Use
  Company Number: AUR-APL-2012-04571

PATIENT
  Age: 79 Year
  Sex: Female

DRUGS (2)
  1. ATENOLOL [Suspect]
     Dosage: 1 dosage forms
     Route: 048
     Dates: start: 20110805, end: 20120804
  2. INDAPAMIDE\PERINDOPRIL ERBUMINE [Suspect]
     Dosage: 1 dosage forms
     Route: 048
     Dates: start: 20110805, end: 20120804

REACTIONS (2)
  - Presyncope [None]
  - Heart rate decreased [None]
